FAERS Safety Report 7383792-1 (Version None)
Quarter: 2011Q1

REPORT INFORMATION
  Report Type: 
  Country: None (occurrence: None)
  Receive Date: 20110322
  Receipt Date: 20110308
  Transmission Date: 20110831
  Serious: Yes (Hospitalization)
  Sender: FDA-Public Use
  Company Number: TPA2011A01001

PATIENT
  Age: 6 Decade
  Sex: Female

DRUGS (1)
  1. ULORIC [Suspect]

REACTIONS (1)
  - CARDIAC FAILURE CONGESTIVE [None]
